FAERS Safety Report 7047723-6 (Version None)
Quarter: 2010Q4

REPORT INFORMATION
  Report Type: 
  Country: None (occurrence: None)
  Receive Date: 20101015
  Receipt Date: 20100927
  Transmission Date: 20110411
  Serious: Yes (Disabling, Other)
  Sender: FDA-Public Use
  Company Number: PHEH2007US03407

PATIENT
  Sex: Female
  Weight: 74.83 kg

DRUGS (32)
  1. AREDIA [Suspect]
  2. ZOMETA [Suspect]
  3. RENAGEL [Concomitant]
     Dosage: 800 MG, UNK
  4. KAYEXALATE [Concomitant]
     Dosage: UNK
  5. THALIDOMIDE [Concomitant]
     Dosage: 50 MG, QID
  6. BACTRIM [Concomitant]
     Dosage: 80 MG, BIW
  7. OXYCONTIN [Concomitant]
     Dosage: 10 MG, UNK
  8. NORVASC [Concomitant]
     Dosage: 10 MG, BID
  9. DIOVAN [Concomitant]
     Dosage: 160 MG, BID
  10. TOPRAL XL [Concomitant]
     Dosage: 50 MG, UNK
  11. CALCIUM CARBONATE [Concomitant]
     Dosage: 400 MG, QID
  12. OMEPRAZOLE [Concomitant]
     Dosage: 20 MG, QD
  13. LORTAB [Concomitant]
     Dosage: 7.5 MG, PRN
  14. STEROIDS NOS [Concomitant]
     Dosage: PULSE THERAPY
  15. NEPHRO-VITE [Concomitant]
  16. CHEMOTHERAPEUTICS NOS [Concomitant]
  17. CELEXA [Concomitant]
  18. LIPITOR [Concomitant]
  19. CELLCEPT [Concomitant]
  20. METHADONE [Concomitant]
  21. PREDNISONE [Concomitant]
  22. MAGNESIUM [Concomitant]
  23. LYRICA [Concomitant]
  24. MINOXIDIL [Concomitant]
  25. MIRALAX [Concomitant]
  26. ROCALTROL [Concomitant]
  27. PROGRAF [Concomitant]
     Dosage: 1 MG, QID
  28. MYCELEX [Concomitant]
     Dosage: UNK
  29. METOPROLOL [Concomitant]
     Dosage: 100 MG, BID
  30. METOCLOPRAMIDE [Concomitant]
     Dosage: 10 MG, TID
  31. SENSIPAR [Concomitant]
     Dosage: 30 MG, QOD
  32. SODIUM POLYSTYRENE SULFONATE [Concomitant]
     Dosage: 60 MG, 4 TABS, QD

REACTIONS (50)
  - ABDOMINAL PAIN UPPER [None]
  - ACUTE LEUKAEMIA [None]
  - ANAEMIA [None]
  - ANGIOPLASTY [None]
  - ANXIETY [None]
  - ARTERIOVENOUS FISTULA SITE COMPLICATION [None]
  - ARTERIOVENOUS FISTULA THROMBOSIS [None]
  - ARTERIOVENOUS GRAFT ANEURYSM [None]
  - ARTERIOVENOUS SHUNT OPERATION [None]
  - AZOTAEMIA [None]
  - BACK PAIN [None]
  - BARRETT'S OESOPHAGUS [None]
  - BLOOD CALCIUM DECREASED [None]
  - BLOOD GLUCOSE DECREASED [None]
  - BLOOD POTASSIUM INCREASED [None]
  - BONE DISORDER [None]
  - CHANGE OF BOWEL HABIT [None]
  - CHOLECYSTECTOMY [None]
  - CHOLECYSTITIS [None]
  - COLON POLYPECTOMY [None]
  - COLONIC POLYP [None]
  - COUGH [None]
  - DECREASED INTEREST [None]
  - DIALYSIS [None]
  - DIARRHOEA [None]
  - DIVERTICULUM [None]
  - DYSPEPSIA [None]
  - EROSIVE OESOPHAGITIS [None]
  - GALLBLADDER CHOLESTEROLOSIS [None]
  - GASTRITIS [None]
  - GASTRITIS ATROPHIC [None]
  - GENERAL PHYSICAL HEALTH DETERIORATION [None]
  - HAEMATEMESIS [None]
  - HAEMORRHOIDS [None]
  - HEADACHE [None]
  - HIATUS HERNIA [None]
  - IMPAIRED GASTRIC EMPTYING [None]
  - INFLUENZA LIKE ILLNESS [None]
  - NEOPLASM MALIGNANT [None]
  - OEDEMA [None]
  - ORAL CAVITY FISTULA [None]
  - OSTEITIS [None]
  - OSTEONECROSIS OF JAW [None]
  - PAIN [None]
  - POST HERPETIC NEURALGIA [None]
  - RENAL FAILURE ACUTE [None]
  - THROMBECTOMY [None]
  - THROMBOLYSIS [None]
  - TOOTH ABSCESS [None]
  - TRANSFUSION [None]
